FAERS Safety Report 5888606-4 (Version None)
Quarter: 2008Q3

REPORT INFORMATION
  Report Type: 
  Country: None (occurrence: None)
  Receive Date: 20080918
  Receipt Date: 20080904
  Transmission Date: 20090109
  Serious: Yes (Hospitalization)
  Sender: FDA-Public Use
  Company Number: BR-GENENTECH-267198

PATIENT
  Age: 71 Year
  Sex: Male

DRUGS (6)
  1. AVASTIN [Suspect]
     Indication: COLON CANCER METASTATIC
     Dosage: 5 KG, Q15D
     Route: 042
     Dates: start: 20080701
  2. XELODA [Suspect]
     Indication: COLON CANCER METASTATIC
     Dosage: 2500 MG, QD
     Route: 048
     Dates: start: 20080808, end: 20080814
  3. FLUOROURACIL [Suspect]
     Indication: COLON CANCER METASTATIC
     Dosage: UNK
     Route: 042
     Dates: start: 20080701
  4. LEUCOVORIN CALCIUM [Suspect]
     Indication: COLON CANCER METASTATIC
     Dosage: UNK
     Route: 042
     Dates: start: 20080701
  5. IRINOTECAN HCL [Suspect]
     Indication: COLON CANCER METASTATIC
     Dosage: UNK
     Route: 042
     Dates: start: 20080701
  6. MAREVAN [Suspect]
     Indication: THROMBOSIS
     Dosage: UNK
     Route: 048

REACTIONS (3)
  - DIARRHOEA [None]
  - FUNGAL OESOPHAGITIS [None]
  - MUCOSAL INFLAMMATION [None]
